FAERS Safety Report 9255393 (Version 2)
Quarter: 2014Q1

REPORT INFORMATION
  Report Type: Spontaneous
  Country: US (occurrence: None)
  Receive Date: 20121212
  Receipt Date: 20130314
  Transmission Date: 20141002
  Serious: No
  Sender: FDA-Public Use
  Company Number: 1209USA010377

PATIENT
  Age: 59 Year
  Sex: Female

DRUGS (3)
  1. VICTRELIS [Suspect]
     Indication: HEPATITIS C
     Route: 048
     Dates: start: 20120813
  2. PEGINTRON [Suspect]
     Indication: HEPATITIS C
     Dosage: 120 MCG PER 0.5ML, QW, SUBCUTANEOUS
     Route: 058
     Dates: start: 20120801
  3. RIBASPHERE [Suspect]
     Indication: HEPATITIS C
     Dosage: 600MG IN THE MORNING AND 600MG IN THE EVENING

REACTIONS (19)
  - Paraesthesia oral [None]
  - Glossodynia [None]
  - Tongue discolouration [None]
  - Pruritus [None]
  - Diarrhoea [None]
  - Nausea [None]
  - Vomiting [None]
  - Rash [None]
  - Dry skin [None]
  - Rash papular [None]
  - Fatigue [None]
  - Red blood cell count decreased [None]
  - White blood cell count decreased [None]
  - Tongue disorder [None]
  - Platelet count decreased [None]
  - Eye infection [None]
  - Respiratory tract infection [None]
  - Productive cough [None]
  - Sinus congestion [None]
